FAERS Safety Report 6371936-X (Version None)
Quarter: 2009Q3

REPORT INFORMATION
  Report Type: 
  Country: None (occurrence: None)
  Receive Date: 20090923
  Receipt Date: 20090909
  Transmission Date: 20100115
  Serious: Yes (Other)
  Sender: FDA-Public Use
  Company Number: GB-ELI_LILLY_AND_COMPANY-GB200909002540

PATIENT
  Sex: Male

DRUGS (3)
  1. OLANZAPINE [Suspect]
     Indication: SCHIZOPHRENIA, PARANOID TYPE
     Dosage: 10 MG, DAILY (1/D)
     Dates: start: 20030101, end: 20030427
  2. OLANZAPINE [Suspect]
     Dosage: 5 MG, EACH EVENING
     Dates: start: 20030428
  3. STELAZINE [Concomitant]
     Dosage: UNK, UNKNOWN

REACTIONS (9)
  - ABDOMINAL DISTENSION [None]
  - AGGRESSION [None]
  - AGITATION [None]
  - DIZZINESS [None]
  - FLUSHING [None]
  - GYNAECOMASTIA [None]
  - HOMICIDAL IDEATION [None]
  - SUICIDAL BEHAVIOUR [None]
  - WEIGHT INCREASED [None]
